FAERS Safety Report 4915221-9 (Version None)
Quarter: 2006Q1

REPORT INFORMATION
  Report Type: 
  Country: None (occurrence: None)
  Receive Date: 20060216
  Receipt Date: 20060216
  Transmission Date: 20060701
  Serious: Yes (Hospitalization)
  Sender: FDA-Public Use
  Company Number: None

PATIENT
  Sex: Female
  Weight: 72.5755 kg

DRUGS (6)
  1. INSULIN [Suspect]
     Indication: DIABETES MELLITUS
     Dosage: PRIOR TO ADMISSION
  2. SYNTHROID [Concomitant]
  3. ZETIA [Concomitant]
  4. COREG [Concomitant]
  5. KEFLEX [Concomitant]
  6. COMPAZINE [Concomitant]

REACTIONS (1)
  - BLOOD GLUCOSE DECREASED [None]
